APPROVED DRUG PRODUCT: FLUOCINOLONE ACETONIDE
Active Ingredient: FLUOCINOLONE ACETONIDE
Strength: 0.01%
Dosage Form/Route: OIL;TOPICAL
Application: A210556 | Product #001
Applicant: GLENMARK PHARMACEUTICALS LTD
Approved: Oct 25, 2018 | RLD: No | RS: No | Type: DISCN